FAERS Safety Report 8535962-4 (Version None)
Quarter: 2012Q3

REPORT INFORMATION
  Report Type: 
  Country: None (occurrence: None)
  Receive Date: 20120725
  Receipt Date: 20120723
  Transmission Date: 20120928
  Serious: Yes (Hospitalization, Other)
  Sender: FDA-Public Use
  Company Number: PHHY2012NL063447

PATIENT
  Sex: Male

DRUGS (7)
  1. ZOMETA [Suspect]
     Dosage: 4 MG / 100 ML ONCE EVERY 28 DAYS
     Dates: start: 20120702
  2. IMODIUM [Concomitant]
     Dosage: 4 MG, PRN
  3. ZOMETA [Suspect]
     Dosage: 4 MG / 100 ML ONCE EVERY 28 DAYS
     Dates: start: 20120723
  4. ACETAMINOPHEN [Concomitant]
     Dosage: 1000 MG, QID
  5. ZOMETA [Suspect]
     Indication: METASTASES TO BONE
     Dosage: 4 MG / 100 ML ONCE EVERY 28 DAYS
  6. ZOMETA [Suspect]
     Dosage: 4 MG / 100 ML ONCE EVERY 28 DAYS
     Dates: start: 20120216
  7. DICLOFENAC [Concomitant]
     Dosage: 75 MG, BID

REACTIONS (7)
  - MALAISE [None]
  - BACK PAIN [None]
  - NEOPLASM PROGRESSION [None]
  - NEOPLASM MALIGNANT [None]
  - WEIGHT DECREASED [None]
  - MOBILITY DECREASED [None]
  - DIARRHOEA [None]
